FAERS Safety Report 4350729-9 (Version None)
Quarter: 2004Q2

REPORT INFORMATION
  Report Type: 
  Country: None (occurrence: None)
  Receive Date: 20040428
  Receipt Date: 20040414
  Transmission Date: 20050107
  Serious: Yes (Hospitalization)
  Sender: FDA-Public Use
  Company Number: 2001-FF-C0495

PATIENT
  Age: 45 Year
  Sex: Male

DRUGS (2)
  1. VIRAMUNE [Suspect]
     Indication: HIV INFECTION
     Dosage: 400 MG (200 MG, 1 IN 12 HR)
     Route: 048
     Dates: start: 20001006, end: 20001030
  2. COMBIVIR (ZIDOVUDINE) (TA) [Concomitant]

REACTIONS (5)
  - AGRANULOCYTOSIS [None]
  - BLOOD LACTATE DEHYDROGENASE INCREASED [None]
  - PLATELET COUNT INCREASED [None]
  - PYREXIA [None]
  - TOXIC SKIN ERUPTION [None]
